FAERS Safety Report 5844056-8 (Version None)
Quarter: 2008Q3

REPORT INFORMATION
  Report Type: 
  Country: None (occurrence: None)
  Receive Date: 20080813
  Receipt Date: 20080804
  Transmission Date: 20090109
  Serious: Yes (Death)
  Sender: FDA-Public Use
  Company Number: NL-ELI_LILLY_AND_COMPANY-NL200807004771

PATIENT
  Age: 85 Year
  Sex: Female

DRUGS (1)
  1. CYMBALTA [Suspect]
     Indication: PRURITUS
     Dosage: UNK, UNKNOWN
     Route: 065

REACTIONS (1)
  - DEATH [None]
